FAERS Safety Report 4799053-0 (Version None)
Quarter: 2005Q4

REPORT INFORMATION
  Report Type: 
  Country: None (occurrence: None)
  Receive Date: 20051013
  Receipt Date: 20050930
  Transmission Date: 20060501
  Serious: Yes (Other)
  Sender: FDA-Public Use
  Company Number: 200511955BWH

PATIENT
  Age: 67 Year
  Sex: Female

DRUGS (6)
  1. CIPRO XR [Suspect]
     Indication: URINARY TRACT INFECTION
     Dosage: 1000 MG, QD, ORAL
     Route: 048
     Dates: start: 20050909
  2. MAXZIDE [Concomitant]
  3. AMBIEN [Concomitant]
  4. SANCTURA [Concomitant]
  5. ELMIRON [Concomitant]
  6. PREMARIN [Concomitant]

REACTIONS (2)
  - DIARRHOEA HAEMORRHAGIC [None]
  - HAEMORRHOIDS [None]
